FAERS Safety Report 19813831 (Version 2)
Quarter: 2023Q1

REPORT INFORMATION
  Report Type: Report from Study
  Country: US (occurrence: None)
  Receive Date: 20210909
  Receipt Date: 20230321
  Transmission Date: 20230418
  Serious: Yes (Death, Hospitalization)
  Sender: FDA-Public Use
  Company Number: US-ROCHE-2893654

PATIENT
  Sex: Male

DRUGS (5)
  1. OBINUTUZUMAB [Suspect]
     Active Substance: OBINUTUZUMAB
     Indication: Chronic lymphocytic leukaemia refractory
     Dosage: RECEIVED TREATMENT OVER 4-6 HOURS ON DAYS 1, 2, 8, AND 15 OF CYCLE 15 AND DAY 1 OF CYCLES 16-20
     Route: 042
     Dates: start: 20201211
  2. OBINUTUZUMAB [Suspect]
     Active Substance: OBINUTUZUMAB
     Dosage: RECEIVED TREATMENT OVER 4-6 HOURS ON DAYS 1, 2, 8, AND 15 OF CYCLE 15 AND DAY 1 OF CYCLES 16-20?DATE
     Route: 042
     Dates: start: 20210511
  3. VENETOCLAX [Suspect]
     Active Substance: VENETOCLAX
     Indication: Chronic lymphocytic leukaemia refractory
     Dosage: BEGINNING CYCLE 3 TWICE A DAY ON DAYS 1-28
     Route: 048
     Dates: start: 20210210
  4. VENETOCLAX [Suspect]
     Active Substance: VENETOCLAX
     Dosage: BEGINNING CYCLE 3 TWICE A DAY ON DAYS 1-28?DATE OF LAST DOSE WAS ON 06/SEP/2021
     Route: 048
     Dates: start: 20210803, end: 20210804
  5. ACALABRUTINIB [Suspect]
     Active Substance: ACALABRUTINIB
     Indication: Chronic lymphocytic leukaemia refractory
     Dosage: TWICE A DAY ON DAYS 1-28
     Route: 065
     Dates: start: 20210803, end: 20210804

REACTIONS (1)
  - COVID-19 [Fatal]

NARRATIVE: CASE EVENT DATE: 20210804
